FAERS Safety Report 10191096 (Version 6)
Quarter: 2014Q3

REPORT INFORMATION
  Report Type: Spontaneous
  Country: JP (occurrence: JP)
  Receive Date: 20140523
  Receipt Date: 20140812
  Transmission Date: 20150326
  Serious: Yes (Hospitalization, Other)
  Sender: FDA-Public Use
  Company Number: PHHY2014JP051578

PATIENT
  Age: 73 Year
  Sex: Female
  Weight: 39.1 kg

DRUGS (8)
  1. NEXIUM [Concomitant]
     Active Substance: ESOMEPRAZOLE MAGNESIUM
     Indication: ENDOTRACHEAL INTUBATION
     Dosage: 20 MG, UNK
     Route: 048
     Dates: start: 20130214, end: 20140602
  2. METHYCOBAL [Concomitant]
     Active Substance: METHYLCOBALAMIN
     Indication: ENDOTRACHEAL INTUBATION
     Dosage: 500 MG, UNK
     Route: 048
     Dates: start: 20101124, end: 20140602
  3. GLIMEPIRIDE. [Concomitant]
     Active Substance: GLIMEPIRIDE
     Dosage: 2 MG, UNK
     Route: 048
     Dates: start: 20120322, end: 20140515
  4. GASCON [Concomitant]
     Active Substance: DIMETHICONE
     Dosage: 40 MG, UNK
     Route: 048
     Dates: start: 20140220
  5. SANDOSTATIN LAR DEPOT [Suspect]
     Active Substance: OCTREOTIDE ACETATE
     Indication: GASTRINOMA
     Dosage: 30 MG, PER ADMINISTRATION (ONLY ONCE)
     Route: 030
     Dates: start: 20140306, end: 20140410
  6. OLMETEC [Concomitant]
     Active Substance: OLMESARTAN MEDOXOMIL
     Indication: BLOOD PRESSURE MANAGEMENT
     Dosage: 20 MG, UNK
     Route: 048
     Dates: start: 20120319, end: 20140501
  7. SANDOSTATIN LAR DEPOT [Suspect]
     Active Substance: OCTREOTIDE ACETATE
     Indication: OFF LABEL USE
     Dosage: 30 UNK, UNK
     Route: 030
  8. MAGMITT [Concomitant]
     Active Substance: MAGNESIUM OXIDE
     Indication: ENDOTRACHEAL INTUBATION
     Dosage: 330 MG, UNK
     Route: 048
     Dates: start: 20120610, end: 20140602

REACTIONS (14)
  - Dysgeusia [Recovered/Resolved]
  - Decreased appetite [Unknown]
  - Abdominal pain [Unknown]
  - Thrombosis [Recovered/Resolved]
  - Respiratory failure [Unknown]
  - Blood glucose increased [Unknown]
  - Dyspnoea [Recovered/Resolved]
  - Hypoalbuminaemia [Recovered/Resolved]
  - Pulmonary oedema [Not Recovered/Not Resolved]
  - Oedema peripheral [Recovered/Resolved]
  - Oral pain [Unknown]
  - Stress cardiomyopathy [Unknown]
  - Urine odour abnormal [Unknown]
  - Abdominal pain upper [Recovered/Resolved]

NARRATIVE: CASE EVENT DATE: 20140323
